FAERS Safety Report 14874476 (Version 1)
Quarter: 2018Q2

REPORT INFORMATION
  Report Type: Spontaneous
  Country: GB (occurrence: GB)
  Receive Date: 20180510
  Receipt Date: 20180510
  Transmission Date: 20180711
  Serious: Yes (Other)
  Sender: FDA-Public Use
  Company Number: GB-APOTEX-2018AP013014

PATIENT
  Age: 40 Year
  Sex: Male

DRUGS (1)
  1. PAROXETINE. [Suspect]
     Active Substance: PAROXETINE
     Dosage: 20 MG, 1X/DAY
     Route: 048

REACTIONS (4)
  - Eye oedema [Unknown]
  - Intraocular pressure increased [Recovering/Resolving]
  - Angle closure glaucoma [Recovering/Resolving]
  - Vision blurred [Recovered/Resolved]
